FAERS Safety Report 10598421 (Version 1)
Quarter: 2014Q4

REPORT INFORMATION
  Report Type: Spontaneous
  Country: US (occurrence: None)
  Receive Date: 20141119
  Receipt Date: 20141119
  Transmission Date: 20150529
  Serious: Yes (Other)
  Sender: FDA-Public Use
  Company Number: 001828555A

PATIENT
  Age: 56 Year
  Sex: Female

DRUGS (2)
  1. MEANINGFUL BEAUTY CINDY CRAWFORD SKIN BRIGHTENING DECOLLETE AND NECK TREATMENT SPF 15 [Suspect]
     Active Substance: AVOBENZONE\OCTINOXATE\OCTISALATE\OXYBENZONE
     Dosage: ONCE DAILY DERMAL
     Dates: start: 201401, end: 201407
  2. MEANINGFUL BEAUTY CINDY CRAWFORD ANTIOXIDANT SPF 20 UVA/UVB [Suspect]
     Active Substance: AVOBENZONE\OCTINOXATE\OCTISALATE\OXYBENZONE
     Dosage: ONCE DAILY DERMAL
     Dates: start: 201401, end: 201407

REACTIONS (4)
  - Eye irritation [None]
  - Eyelid disorder [None]
  - Foreign body sensation in eyes [None]
  - Calcinosis [None]

NARRATIVE: CASE EVENT DATE: 201404
